FAERS Safety Report 8790199 (Version 1)
Quarter: 2012Q4

REPORT INFORMATION
  Report Type: 
  Country: US (occurrence: US)
  Receive Date: 20120917
  Receipt Date: 20120917
  Transmission Date: 20130627
  Serious: No
  Sender: FDA-Public Use
  Company Number: US-009507513-1209USA004982

PATIENT

DRUGS (4)
  1. PEGINTRON [Suspect]
     Indication: HEPATITIS C
     Dosage: 120 Microgram, qw
     Route: 058
     Dates: start: 20120725
  2. RIBASPHERE [Suspect]
     Indication: HEPATITIS C
     Dosage: 600 mg, qam
  3. RIBASPHERE [Suspect]
     Dosage: 400 mg, qpm
  4. TELAPREVIR [Concomitant]
     Indication: HEPATITIS C
     Dosage: 750 mg, tid

REACTIONS (2)
  - Viral load increased [Unknown]
  - Drug ineffective [Unknown]
